FAERS Safety Report 21965110 (Version 7)
Quarter: 2023Q4

REPORT INFORMATION
  Report Type: Report from Study
  Country: US (occurrence: US)
  Receive Date: 20230207
  Receipt Date: 20231016
  Transmission Date: 20240110
  Serious: Yes (Other)
  Sender: FDA-Public Use
  Company Number: US-ABBVIE-4297892

PATIENT
  Age: 74 Year
  Sex: Male

DRUGS (6)
  1. IMBRUVICA [Suspect]
     Active Substance: IBRUTINIB
     Indication: Waldenstrom^s macroglobulinaemia
     Route: 048
     Dates: start: 20220718
  2. IMBRUVICA [Suspect]
     Active Substance: IBRUTINIB
     Indication: Waldenstrom^s macroglobulinaemia
     Dosage: END DATE- JUL 2022
     Route: 048
     Dates: start: 20220713
  3. IMBRUVICA [Suspect]
     Active Substance: IBRUTINIB
     Indication: Waldenstrom^s macroglobulinaemia
     Route: 048
     Dates: start: 202206
  4. ATORVASTATIN [Concomitant]
     Active Substance: ATORVASTATIN
     Indication: Product used for unknown indication
  5. EZETIMIBE [Concomitant]
     Active Substance: EZETIMIBE
     Indication: Product used for unknown indication
  6. CHOLESTEROL [Concomitant]
     Active Substance: CHOLESTEROL
     Indication: Product used for unknown indication

REACTIONS (12)
  - Neovascular age-related macular degeneration [Unknown]
  - Myalgia [Unknown]
  - Sinus congestion [Unknown]
  - Dyspepsia [Unknown]
  - Cataract [Unknown]
  - Arthralgia [Unknown]
  - Pain [Unknown]
  - Hot flush [Unknown]
  - Bradykinesia [Unknown]
  - Aneurysm [Unknown]
  - Adhesion [Unknown]
  - Dry eye [Unknown]

NARRATIVE: CASE EVENT DATE: 20221201
